FAERS Safety Report 10336714 (Version 3)
Quarter: 2015Q1

REPORT INFORMATION
  Report Type: Spontaneous
  Country: US (occurrence: US)
  Receive Date: 20140723
  Receipt Date: 20150119
  Transmission Date: 20150720
  Serious: No
  Sender: FDA-Public Use
  Company Number: US-UNITED THERAPEUTICS-UTC-044097

PATIENT
  Age: 53 Year
  Sex: Female
  Weight: 104.31 kg

DRUGS (3)
  1. ADCIRCA [Concomitant]
     Active Substance: TADALAFIL
  2. REMODULIN [Suspect]
     Active Substance: TREPROSTINIL
     Indication: PULMONARY ARTERIAL HYPERTENSION
     Dosage: 0.046 ?G/KG/MIN, CONTINUING
     Route: 058
     Dates: start: 20130610
  3. COUMADIN [Concomitant]
     Active Substance: WARFARIN SODIUM

REACTIONS (13)
  - Infusion site erythema [Recovering/Resolving]
  - Dry skin [Unknown]
  - Presyncope [Unknown]
  - Infusion site swelling [Unknown]
  - Infusion site pain [Recovering/Resolving]
  - Infusion site reaction [Unknown]
  - Hypersensitivity [Unknown]
  - Infusion site extravasation [Unknown]
  - Injection site discharge [Unknown]
  - Ear discomfort [Unknown]
  - Injection site haemorrhage [Unknown]
  - Infusion site haemorrhage [Unknown]
  - Catheter site haemorrhage [Unknown]

NARRATIVE: CASE EVENT DATE: 201401
